FAERS Safety Report 24630760 (Version 1)
Quarter: 2024Q4

REPORT INFORMATION
  Report Type: Spontaneous
  Country: US (occurrence: None)
  Receive Date: 20241115
  Receipt Date: 20241115
  Transmission Date: 20250115
  Serious: Yes (Other)
  Sender: Public
  Company Number: None

PATIENT
  Age: 29 Year
  Sex: Female

DRUGS (1)
  1. CREST PRO HEALTH CLEAN MINT [Suspect]
     Active Substance: STANNOUS FLUORIDE
     Dates: start: 20241109, end: 20241115

REACTIONS (1)
  - Ageusia [None]

NARRATIVE: CASE EVENT DATE: 20241115
